FAERS Safety Report 10541931 (Version 2)
Quarter: 2014Q4

REPORT INFORMATION
  Report Type: Spontaneous
  Country: JP (occurrence: JP)
  Receive Date: 20141024
  Receipt Date: 20141110
  Transmission Date: 20150529
  Serious: Yes (Other)
  Sender: FDA-Public Use
  Company Number: JP-MUNDIPHARMA DS AND PHARMACOVIGILANCE-GBR-2014-0023193

PATIENT
  Age: 89 Year
  Sex: Female

DRUGS (5)
  1. KARY UNI                           /00528801/ [Concomitant]
     Active Substance: PIRENOXINE
     Route: 047
  2. LUMIGAN [Concomitant]
     Active Substance: BIMATOPROST
     Route: 047
  3. NORSPAN [Suspect]
     Active Substance: BUPRENORPHINE
     Indication: ANALGESIC THERAPY
     Dosage: UNK
     Route: 062
     Dates: start: 201409, end: 201409
  4. AZOPT [Concomitant]
     Active Substance: BRINZOLAMIDE
     Route: 047
  5. ALPHAGAN P [Concomitant]
     Active Substance: BRIMONIDINE TARTRATE
     Route: 047

REACTIONS (1)
  - Dementia [Not Recovered/Not Resolved]
